FAERS Safety Report 12870375 (Version 1)
Quarter: 2016Q4

REPORT INFORMATION
  Report Type: Spontaneous
  Country: US (occurrence: US)
  Receive Date: 20161021
  Receipt Date: 20161021
  Transmission Date: 20170207
  Serious: Yes (Disabling, Other)
  Sender: FDA-Public Use
  Company Number: None

PATIENT
  Age: 40 Year
  Sex: Male
  Weight: 62.6 kg

DRUGS (3)
  1. IBUPROFEN. [Concomitant]
     Active Substance: IBUPROFEN
  2. FISH OIL [Concomitant]
     Active Substance: FISH OIL
  3. INVEGA SUSTENNA [Suspect]
     Active Substance: PALIPERIDONE PALMITATE
     Indication: MENTAL IMPAIRMENT
     Dosage: ?          QUANTITY:J?? / C3 -^?_IST ANY RELE;?
     Dates: start: 20140529, end: 20140529

REACTIONS (6)
  - Feeling abnormal [None]
  - Drug effect delayed [None]
  - Fear [None]
  - Visual impairment [None]
  - Anxiety [None]
  - Impaired work ability [None]

NARRATIVE: CASE EVENT DATE: 20140615
